FAERS Safety Report 5913322-X (Version None)
Quarter: 2008Q4

REPORT INFORMATION
  Report Type: 
  Country: None (occurrence: None)
  Receive Date: 20081008
  Receipt Date: 20081008
  Transmission Date: 20090506
  Serious: Yes (Other)
  Sender: FDA-Public Use
  Company Number: None

PATIENT
  Age: 28 Year
  Sex: Female
  Weight: 111.1313 kg

DRUGS (2)
  1. ACTOS [Suspect]
     Indication: INSULIN RESISTANCE
     Dosage: 30MG DAILY PO
     Route: 048
  2. ACTOS [Suspect]
     Indication: POLYCYSTIC OVARIES
     Dosage: 30MG DAILY PO
     Route: 048

REACTIONS (3)
  - OEDEMA PERIPHERAL [None]
  - PITTING OEDEMA [None]
  - SWELLING [None]
